FAERS Safety Report 7923841-2 (Version None)
Quarter: 2011Q4

REPORT INFORMATION
  Report Type: 
  Country: None (occurrence: None)
  Receive Date: 20111117
  Receipt Date: 20110208
  Transmission Date: 20120403
  Serious: No
  Sender: FDA-Public Use
  Company Number: US-AMGEN-USASP2011007688

PATIENT
  Age: 71 Year
  Sex: Male

DRUGS (2)
  1. ENBREL [Suspect]
     Indication: PSORIATIC ARTHROPATHY
     Dates: start: 20080101
  2. ENBREL [Suspect]
     Indication: PSORIASIS

REACTIONS (8)
  - TRIGGER FINGER [None]
  - JOINT STIFFNESS [None]
  - SCAR [None]
  - FOOT DEFORMITY [None]
  - DRUG INEFFECTIVE [None]
  - PSORIATIC ARTHROPATHY [None]
  - PAIN IN EXTREMITY [None]
  - SKIN PAPILLOMA [None]
